FAERS Safety Report 4667926-5 (Version None)
Quarter: 2005Q2

REPORT INFORMATION
  Report Type: 
  Country: None (occurrence: None)
  Receive Date: 20050520
  Receipt Date: 20050511
  Transmission Date: 20051028
  Serious: Yes (Other)
  Sender: FDA-Public Use
  Company Number: GB-JNJFOC-20050402435

PATIENT
  Sex: Female
  Weight: 49 kg

DRUGS (6)
  1. SPORANOX [Suspect]
     Dosage: 3 COURSES OVER 6 MONTHS OVER 3 YEARS
     Route: 049
  2. FLIXOTIDE [Concomitant]
     Indication: ASTHMA
     Route: 065
  3. FOSAMAX [Concomitant]
     Indication: OSTEOPOROSIS
     Route: 065
  4. CALCIUM GLUCONATE [Concomitant]
     Indication: OSTEOPOROSIS
     Route: 065
  5. VITAMIN B COMPLEX CAP [Concomitant]
     Indication: OSTEOPOROSIS
     Route: 065
  6. STEROIDS [Concomitant]
     Route: 065

REACTIONS (3)
  - ADRENAL INSUFFICIENCY [None]
  - HYPOGLYCAEMIA [None]
  - THERAPEUTIC RESPONSE UNEXPECTED [None]
